FAERS Safety Report 5212647-3 (Version None)
Quarter: 2007Q1

REPORT INFORMATION
  Report Type: 
  Country: None (occurrence: None)
  Receive Date: 20070118
  Receipt Date: 20070109
  Transmission Date: 20070707
  Serious: Yes (Other)
  Sender: FDA-Public Use
  Company Number: US-PFIZER INC-2007003299

PATIENT
  Sex: Female
  Weight: 54.4 kg

DRUGS (4)
  1. LYRICA [Suspect]
     Indication: NEURALGIA
  2. MS CONTIN [Concomitant]
  3. BACLOFEN [Concomitant]
  4. HYDROCODONE [Concomitant]

REACTIONS (4)
  - DRUG EFFECT DECREASED [None]
  - DRUG INEFFECTIVE [None]
  - INTERVERTEBRAL DISC PROTRUSION [None]
  - NEURALGIA [None]
